FAERS Safety Report 22065914 (Version 2)
Quarter: 2023Q2

REPORT INFORMATION
  Report Type: Spontaneous
  Country: CN (occurrence: CN)
  Receive Date: 20230306
  Receipt Date: 20230608
  Transmission Date: 20230722
  Serious: Yes (Hospitalization, Other)
  Sender: FDA-Public Use
  Company Number: CN-002147023-NVSC2023CN049504

PATIENT
  Sex: Female
  Weight: 0.895 kg

DRUGS (17)
  1. CYCLOSPORINE [Suspect]
     Active Substance: CYCLOSPORINE
     Indication: Foetal exposure during pregnancy
     Dosage: UNK, UNKNOWN
     Route: 064
  2. CERTOLIZUMAB PEGOL [Suspect]
     Active Substance: CERTOLIZUMAB PEGOL
     Indication: Foetal exposure during pregnancy
     Dosage: UNK, UNKNOWN
     Route: 064
  3. DYDROGESTERONE [Suspect]
     Active Substance: DYDROGESTERONE
     Indication: Foetal exposure during pregnancy
     Dosage: UNK, UNKNOWN
     Route: 064
  4. ERYTHROMYCIN [Suspect]
     Active Substance: ERYTHROMYCIN
     Indication: Foetal exposure during pregnancy
     Dosage: UNK, UNKNOWN
     Route: 064
  5. ERYTHROMYCIN [Suspect]
     Active Substance: ERYTHROMYCIN
     Dosage: 200 MG, BID
     Route: 064
  6. MEDROL [Suspect]
     Active Substance: METHYLPREDNISOLONE
     Indication: Foetal exposure during pregnancy
     Dosage: UNK, UNKNOWN
     Route: 064
  7. MEDROL [Suspect]
     Active Substance: METHYLPREDNISOLONE
     Dosage: 4 MG, QD
     Route: 064
  8. ANDROID [Suspect]
     Active Substance: METHYLTESTOSTERONE
     Indication: Foetal exposure during pregnancy
     Dosage: UNK, UNKNOWN
     Route: 064
  9. ENOXAPARIN [Suspect]
     Active Substance: ENOXAPARIN
     Indication: Foetal exposure during pregnancy
     Dosage: UNK, UNKNOWN
     Route: 064
  10. ENOXAPARIN [Suspect]
     Active Substance: ENOXAPARIN
     Dosage: 6000 IU, BID
     Route: 064
  11. ASPIRIN [Suspect]
     Active Substance: ASPIRIN
     Indication: Foetal exposure during pregnancy
     Dosage: UNK, UNKNOWN
     Route: 064
  12. ASPIRIN [Suspect]
     Active Substance: ASPIRIN
     Dosage: 50 MG, QD
     Route: 064
  13. EUTHYROX [Suspect]
     Active Substance: LEVOTHYROXINE SODIUM
     Indication: Foetal exposure during pregnancy
     Dosage: 75 UG, QD (INJECTED)
     Route: 065
  14. CALCIUM [Suspect]
     Active Substance: CALCIUM
     Indication: Foetal exposure during pregnancy
     Dosage: UNK, UNKNOWN
     Route: 064
  15. IRON [Suspect]
     Active Substance: IRON
     Indication: Foetal exposure during pregnancy
     Dosage: UNK, UNKNOWN
     Route: 064
  16. CHOLECALCIFEROL [Suspect]
     Active Substance: CHOLECALCIFEROL
     Indication: Foetal exposure during pregnancy
     Dosage: UNK, UNKNOWN
     Route: 064
  17. FOLIC ACID [Suspect]
     Active Substance: FOLIC ACID
     Indication: Foetal exposure during pregnancy
     Dosage: UNK, UNKNOWN
     Route: 064

REACTIONS (4)
  - Low birth weight baby [Unknown]
  - Premature baby [Unknown]
  - Foetal growth restriction [Unknown]
  - Foetal exposure during pregnancy [Unknown]
